FAERS Safety Report 16597721 (Version 1)
Quarter: 2019Q3

REPORT INFORMATION
  Report Type: Spontaneous
  Country: US (occurrence: US)
  Receive Date: 20190718
  Receipt Date: 20190718
  Transmission Date: 20191004
  Serious: No
  Sender: FDA-Public Use
  Company Number: None

PATIENT
  Age: 30 Year
  Sex: Female

DRUGS (8)
  1. NORETHINDRONE ACETATE. [Suspect]
     Active Substance: NORETHINDRONE ACETATE
     Indication: ORAL CONTRACEPTION
     Route: 048
     Dates: start: 20190706, end: 20190717
  2. MIRTAZEPAM [Concomitant]
     Active Substance: MIRTAZAPINE
  3. MAGNESIUM [Concomitant]
     Active Substance: MAGNESIUM
  4. MARLISSA [Concomitant]
     Active Substance: ETHINYL ESTRADIOL\LEVONORGESTREL
  5. CALCIUM SUPPLEMENT [Concomitant]
     Active Substance: CALCIUM
  6. KIRLAND WOMENS VITAMINS [Concomitant]
  7. ZYRTEC [Concomitant]
     Active Substance: CETIRIZINE HYDROCHLORIDE
  8. VALACYCLOVIR [Concomitant]
     Active Substance: VALACYCLOVIR HYDROCHLORIDE

REACTIONS (8)
  - Abdominal pain upper [None]
  - Acne [None]
  - Back pain [None]
  - Migraine [None]
  - Hormone level abnormal [None]
  - Product dispensing error [None]
  - Anxiety [None]
  - Haemorrhage [None]

NARRATIVE: CASE EVENT DATE: 20190706
